FAERS Safety Report 8375826-2 (Version None)
Quarter: 2012Q2

REPORT INFORMATION
  Report Type: 
  Country: None (occurrence: None)
  Receive Date: 20120522
  Receipt Date: 20120515
  Transmission Date: 20120825
  Serious: Yes (Other)
  Sender: FDA-Public Use
  Company Number: US-BAYER-2012-044242

PATIENT
  Age: 54 Year
  Sex: Female

DRUGS (5)
  1. BETASERON [Suspect]
     Dosage: UNK
     Dates: start: 20060422, end: 20070321
  2. BETASERON [Suspect]
     Dosage: 2 MIU, QOD
     Route: 058
     Dates: start: 20120427
  3. EXTRA STRENGTH TYLENOL [Concomitant]
     Indication: PAIN
  4. BETASERON [Suspect]
     Indication: MULTIPLE SCLEROSIS
     Dosage: 4 MIU, UNK
     Route: 058
     Dates: start: 20120514
  5. EXTRA STRENGTH TYLENOL [Concomitant]
     Indication: PREMEDICATION

REACTIONS (4)
  - PAIN IN EXTREMITY [None]
  - MUSCULAR WEAKNESS [None]
  - ABASIA [None]
  - FALL [None]
